FAERS Safety Report 8295694-7 (Version None)
Quarter: 2012Q2

REPORT INFORMATION
  Report Type: 
  Country: None (occurrence: None)
  Receive Date: 20120416
  Receipt Date: 20120416
  Transmission Date: 20120825
  Serious: Yes (Hospitalization)
  Sender: FDA-Public Use
  Company Number: None

PATIENT
  Sex: Male
  Weight: 79.5 kg

DRUGS (2)
  1. EVEROLIMUS 5 MG NOVARTIS PHARMACEUTICALS [Suspect]
     Indication: PROSTATE CANCER
     Dosage: 5 MG DAILY ORAL
     Route: 048
     Dates: start: 20110513
  2. CARBOPLATIN [Suspect]
     Dosage: 265 MG EVERY EVERY 4 WKS IV
     Route: 042
     Dates: start: 20120329

REACTIONS (5)
  - DEHYDRATION [None]
  - NEUTROPENIA [None]
  - INFLUENZA [None]
  - SYNCOPE [None]
  - ELECTROLYTE IMBALANCE [None]
